FAERS Safety Report 25435887 (Version 1)
Quarter: 2025Q2

REPORT INFORMATION
  Report Type: Spontaneous
  Country: SE (occurrence: SE)
  Receive Date: 20250613
  Receipt Date: 20250613
  Transmission Date: 20250717
  Serious: Yes (Life-Threatening, Hospitalization, Other)
  Sender: ALEXION PHARMACEUTICALS
  Company Number: SE-AstraZeneca-CH-00871582AM

PATIENT
  Age: 74 Year
  Weight: 60 kg

DRUGS (1)
  1. TAGRISSO [Suspect]
     Active Substance: OSIMERTINIB
     Indication: Lung neoplasm malignant
     Dosage: 80 MILLIGRAM, QD
     Route: 065

REACTIONS (3)
  - Thrombocytopenia [Recovering/Resolving]
  - Immune thrombocytopenia [Unknown]
  - Haematemesis [Unknown]
